FAERS Safety Report 8957507 (Version 2)
Quarter: 2013Q1

REPORT INFORMATION
  Report Type: Spontaneous
  Country: BE (occurrence: BE)
  Receive Date: 20121210
  Receipt Date: 20130118
  Transmission Date: 20140127
  Serious: Yes (Hospitalization, Other)
  Sender: FDA-Public Use
  Company Number: BE-ROCHE-1165999

PATIENT
  Age: 66 Year
  Sex: Female
  Weight: 58 kg

DRUGS (5)
  1. ROACTEMRA [Suspect]
     Indication: RHEUMATOID ARTHRITIS
     Route: 042
  2. PANTOMED (PANTOPRAZOLE) [Concomitant]
     Route: 048
  3. D-CURE [Concomitant]
     Route: 065
  4. PANADOL [Concomitant]
     Route: 065
  5. COVERSYL [Concomitant]
     Indication: HYPERTENSION

REACTIONS (3)
  - Colitis ischaemic [Recovered/Resolved]
  - Constipation [Unknown]
  - Hypercholesterolaemia [Unknown]
